FAERS Safety Report 20422072 (Version 1)
Quarter: 2022Q1

REPORT INFORMATION
  Report Type: Spontaneous
  Country: US (occurrence: None)
  Receive Date: 20220203
  Receipt Date: 20220203
  Transmission Date: 20220423
  Serious: Yes (Other)
  Sender: FDA-Public Use
  Company Number: None

PATIENT
  Age: 74 Year
  Sex: Male
  Weight: 110 kg

DRUGS (1)
  1. CIPROFLOXACIN HYDROCHLORIDE [Suspect]
     Active Substance: CIPROFLOXACIN HYDROCHLORIDE
     Indication: Epididymitis
     Dosage: FREQUENCY : TWICE A DAY;?
     Route: 048
     Dates: start: 20211029, end: 20211030

REACTIONS (6)
  - Rash [None]
  - Rash [None]
  - Erythema multiforme [None]
  - Urticaria [None]
  - Nausea [None]
  - Vomiting [None]

NARRATIVE: CASE EVENT DATE: 20211030
